FAERS Safety Report 13009157 (Version 1)
Quarter: 2016Q4

REPORT INFORMATION
  Report Type: Spontaneous
  Country: PT (occurrence: PT)
  Receive Date: 20161208
  Receipt Date: 20161208
  Transmission Date: 20170207
  Serious: Yes (Hospitalization)
  Sender: FDA-Public Use
  Company Number: PT-SCIEGEN PHARMACEUTICALS INC-2016SCILIT00609

PATIENT
  Age: 96 Year
  Sex: Male

DRUGS (3)
  1. FUROSEMIDE. [Suspect]
     Active Substance: FUROSEMIDE
     Indication: PRODUCT USED FOR UNKNOWN INDICATION
     Dosage: UNK
     Route: 065
  2. RAMIPRIL. [Suspect]
     Active Substance: RAMIPRIL
     Indication: PRODUCT USED FOR UNKNOWN INDICATION
     Dosage: UNK
     Route: 065
  3. METFORMIN HYDROCHLORIDE TABLETS, USP [Suspect]
     Active Substance: METFORMIN HYDROCHLORIDE
     Indication: PRODUCT USED FOR UNKNOWN INDICATION
     Dosage: UNKNOWN
     Route: 065

REACTIONS (7)
  - Blood pressure immeasurable [Unknown]
  - Unresponsive to stimuli [Unknown]
  - Shock [Unknown]
  - Lactic acidosis [Recovering/Resolving]
  - Acute kidney injury [Recovered/Resolved]
  - Rhythm idioventricular [Recovering/Resolving]
  - Respiratory rate decreased [Unknown]
